FAERS Safety Report 15073591 (Version 1)
Quarter: 2018Q2

REPORT INFORMATION
  Report Type: Spontaneous
  Country: US (occurrence: US)
  Receive Date: 20180627
  Receipt Date: 20180627
  Transmission Date: 20180711
  Serious: No
  Sender: FDA-Public Use
  Company Number: US-GLENMARK PHARMACEUTICALS-2018GMK030962

PATIENT

DRUGS (2)
  1. MUPIROCIN. [Suspect]
     Active Substance: MUPIROCIN
     Indication: HYPERSENSITIVITY
     Dosage: UNK, INSIDE THE NOSE
     Route: 045
     Dates: start: 20171218
  2. SALINE                             /00075401/ [Suspect]
     Active Substance: SODIUM CHLORIDE
     Indication: PRODUCT USED FOR UNKNOWN INDICATION
     Dosage: UNK
     Route: 065

REACTIONS (5)
  - Product use in unapproved indication [Unknown]
  - Drug prescribing error [Unknown]
  - Gastrointestinal disorder [Unknown]
  - Incorrect route of drug administration [Unknown]
  - Rhinalgia [Recovered/Resolved]

NARRATIVE: CASE EVENT DATE: 20171218
